FAERS Safety Report 9300729 (Version 2)
Quarter: 2013Q2

REPORT INFORMATION
  Report Type: Spontaneous
  Country: US (occurrence: US)
  Receive Date: 20130521
  Receipt Date: 20130621
  Transmission Date: 20140414
  Serious: Yes (Hospitalization, Other)
  Sender: FDA-Public Use
  Company Number: US-PFIZER INC-2013150097

PATIENT
  Age: 61 Year
  Sex: Female
  Weight: 55 kg

DRUGS (5)
  1. XALATAN [Suspect]
     Indication: GLAUCOMA
     Dosage: 1 GTT, 1X/DAY
     Route: 047
     Dates: start: 2005, end: 201305
  2. ALPHAGAN [Suspect]
     Dosage: UNK
  3. AZOPT [Concomitant]
     Indication: GLAUCOMA
     Dosage: UNK
     Route: 047
  4. KLONOPIN [Concomitant]
     Indication: CONVULSION
     Dosage: UNK
  5. POTASSIUM [Concomitant]
     Indication: BLOOD POTASSIUM DECREASED
     Dosage: UNK

REACTIONS (6)
  - Convulsion [Recovered/Resolved]
  - Dysarthria [Recovered/Resolved]
  - Blood potassium decreased [Unknown]
  - Drug ineffective [Unknown]
  - Heart rate increased [Unknown]
  - Dyspnoea [Unknown]
